FAERS Safety Report 22017588 (Version 1)
Quarter: 2023Q1

REPORT INFORMATION
  Report Type: Spontaneous
  Country: US (occurrence: None)
  Receive Date: 20230217
  Receipt Date: 20230217
  Transmission Date: 20230417
  Serious: Yes (Death)
  Sender: FDA-Public Use
  Company Number: None

PATIENT
  Age: 81 Year
  Sex: Female

DRUGS (1)
  1. LENALIDOMIDE [Suspect]
     Active Substance: LENALIDOMIDE
     Dosage: FREQUENCY : EVERY OTHER DAY;?
     Route: 048
     Dates: start: 20200723, end: 20221212

REACTIONS (5)
  - Fall [None]
  - Hypothermia [None]
  - Bradycardia [None]
  - Hypoglycaemia [None]
  - Unresponsive to stimuli [None]

NARRATIVE: CASE EVENT DATE: 20221212
